FAERS Safety Report 4509443-9 (Version None)
Quarter: 2004Q4

REPORT INFORMATION
  Report Type: 
  Country: None (occurrence: None)
  Receive Date: 20041025
  Receipt Date: 20040607
  Transmission Date: 20050328
  Serious: Yes (Life-Threatening, Hospitalization)
  Sender: FDA-Public Use
  Company Number: US-JNJFOC-20040202309

PATIENT
  Age: 37 Year
  Sex: Female
  Weight: 75.2971 kg

DRUGS (8)
  1. REMICADE [Suspect]
     Indication: CROHN'S DISEASE
     Dosage: 375 MG, INTRAVENOUS
     Route: 042
     Dates: start: 20040209, end: 20040209
  2. REMICADE [Suspect]
     Indication: CROHN'S DISEASE
     Dosage: 375 MG, INTRAVENOUS
     Route: 042
     Dates: start: 20040126
  3. REMICADE [Suspect]
  4. REMICADE [Suspect]
  5. IMURAN [Concomitant]
  6. ALLEGRA [Concomitant]
  7. ALEVE [Concomitant]
  8. TYLENOL [Concomitant]

REACTIONS (4)
  - ABNORMAL DREAMS [None]
  - ANAPHYLACTIC REACTION [None]
  - DIARRHOEA [None]
  - FLUSHING [None]
